FAERS Safety Report 4969817-9 (Version None)
Quarter: 2006Q2

REPORT INFORMATION
  Report Type: 
  Country: None (occurrence: None)
  Receive Date: 20060411
  Receipt Date: 20060403
  Transmission Date: 20061013
  Serious: Yes (Hospitalization)
  Sender: FDA-Public Use
  Company Number: JP-MERCK-0604USA00508

PATIENT
  Age: 21 Month
  Sex: Female

DRUGS (2)
  1. PRIMAXIN [Suspect]
     Indication: CATHETER RELATED INFECTION
     Route: 042
     Dates: start: 20060201, end: 20060318
  2. HABEKACIN [Concomitant]
     Indication: CATHETER RELATED INFECTION
     Route: 042

REACTIONS (3)
  - C-REACTIVE PROTEIN DECREASED [None]
  - EOSINOPHIL COUNT INCREASED [None]
  - NEUTROPHIL COUNT DECREASED [None]
